FAERS Safety Report 22336845 (Version 1)
Quarter: 2023Q2

REPORT INFORMATION
  Report Type: Spontaneous
  Country: US (occurrence: None)
  Receive Date: 20230518
  Receipt Date: 20230518
  Transmission Date: 20230722
  Serious: No
  Sender: FDA-Public Use
  Company Number: US-ROCHE-3164843

PATIENT
  Sex: Male

DRUGS (3)
  1. ACTEMRA [Suspect]
     Active Substance: TOCILIZUMAB
     Indication: Juvenile idiopathic arthritis
     Dosage: YES, EVERY OTHER SUNDAY
     Route: 058
     Dates: start: 202206
  2. ACTEMRA [Suspect]
     Active Substance: TOCILIZUMAB
  3. CHOLECALCIFEROL [Concomitant]
     Active Substance: CHOLECALCIFEROL

REACTIONS (6)
  - Device issue [Unknown]
  - Product dose omission issue [Unknown]
  - Device malfunction [Unknown]
  - Device defective [Unknown]
  - Product complaint [Unknown]
  - No adverse event [Unknown]
